FAERS Safety Report 24921886 (Version 1)
Quarter: 2025Q1

REPORT INFORMATION
  Report Type: Spontaneous
  Country: US (occurrence: None)
  Receive Date: 20250203
  Receipt Date: 20250203
  Transmission Date: 20250409
  Serious: Yes (Death)
  Sender: FDA-CTU
  Company Number: None

PATIENT
  Age: 77 Year
  Sex: Male

DRUGS (1)
  1. PIRFENIDONE [Suspect]
     Active Substance: PIRFENIDONE
     Indication: Idiopathic pulmonary fibrosis
     Dosage: FREQUENCY : 3 TIMES A DAY;?
     Route: 048
     Dates: start: 20220831, end: 20250202

REACTIONS (5)
  - Pneumonia aspiration [None]
  - Therapy change [None]
  - Drug interaction [None]
  - Cardiac arrest [None]
  - Acute respiratory failure [None]

NARRATIVE: CASE EVENT DATE: 20250202
